FAERS Safety Report 17221336 (Version 1)
Quarter: 2019Q4

REPORT INFORMATION
  Report Type: Spontaneous
  Country: US (occurrence: US)
  Receive Date: 20191231
  Receipt Date: 20191231
  Transmission Date: 20200122
  Serious: No
  Sender: FDA-Public Use
  Company Number: US-009507513-1912USA006234

PATIENT
  Age: 35 Year
  Sex: Female

DRUGS (3)
  1. FOLLISTIM [Concomitant]
     Active Substance: FOLLITROPIN
     Dosage: UNK
  2. GANIRELIX ACETATE INJECTION [Suspect]
     Active Substance: GANIRELIX ACETATE
     Dosage: 250/0.5
     Route: 058
     Dates: start: 20191210
  3. GANIRELIX ACETATE INJECTION [Suspect]
     Active Substance: GANIRELIX ACETATE
     Indication: PREVENTION OF PREMATURE OVULATION
     Dosage: 250/.5
     Route: 058

REACTIONS (3)
  - Needle issue [Unknown]
  - Skin injury [Recovered/Resolved]
  - Device difficult to use [Unknown]

NARRATIVE: CASE EVENT DATE: 20191210
